FAERS Safety Report 25976059 (Version 1)
Quarter: 2025Q4

REPORT INFORMATION
  Report Type: Spontaneous
  Country: US (occurrence: None)
  Receive Date: 20251029
  Receipt Date: 20251029
  Transmission Date: 20260117
  Serious: No
  Sender: FDA-CTU
  Company Number: None

PATIENT

DRUGS (1)
  1. .DELTA.9-TETRAHYDROCANNABINOL\HERBALS [Suspect]
     Active Substance: .DELTA.9-TETRAHYDROCANNABINOL\HERBALS
     Dosage: OTHER QUANTITY : 1 GUMMY;?

REACTIONS (3)
  - Contraindicated product administered [None]
  - Product use issue [None]
  - Adulterated product [None]

NARRATIVE: CASE EVENT DATE: 20251029
